FAERS Safety Report 16236754 (Version 1)
Quarter: 2019Q2

REPORT INFORMATION
  Report Type: Spontaneous
  Country: CA (occurrence: CA)
  Receive Date: 20190425
  Receipt Date: 20190425
  Transmission Date: 20190711
  Serious: Yes (Other)
  Sender: FDA-Public Use
  Company Number: CA-TEVA-2019-CA-1041001

PATIENT
  Age: 67 Year
  Sex: Female

DRUGS (16)
  1. INFLIXIMAB [Concomitant]
     Active Substance: INFLIXIMAB
     Indication: CROHN^S DISEASE
     Route: 042
  2. PULMICORT TURBUHALER [Concomitant]
     Active Substance: BUDESONIDE
     Dosage: 2 EVERY 1 DAY  .
  3. REMICADE [Concomitant]
     Active Substance: INFLIXIMAB
  4. DICLOFENAC [Concomitant]
     Active Substance: DICLOFENAC
     Route: 061
  5. SALBUTAMOL [Concomitant]
     Active Substance: ALBUTEROL
  6. VITAMIN B12 [VITAMIN B12NOS] [Concomitant]
  7. DOXYCYCLINE. [Concomitant]
     Active Substance: DOXYCYCLINE
     Dosage: 200 MILLIGRAM DAILY;
     Route: 048
  8. HYDROMORPHONE [Concomitant]
     Active Substance: HYDROMORPHONE
     Dosage: 2 DOSAGE FORMS DAILY;
     Route: 048
  9. PREDNISONE. [Concomitant]
     Active Substance: PREDNISONE
     Dosage: 1 DOSAGE FORMS DAILY;
  10. BUDESONIDE. [Concomitant]
     Active Substance: BUDESONIDE
  11. CYANOCOBALAMIN. [Concomitant]
     Active Substance: CYANOCOBALAMIN
  12. DILTIAZEM. [Concomitant]
     Active Substance: DILTIAZEM
  13. FLUTICASONE. [Concomitant]
     Active Substance: FLUTICASONE
  14. NIFEDIPINE. [Concomitant]
     Active Substance: NIFEDIPINE
  15. MORPHINE SULPHATE [Suspect]
     Active Substance: MORPHINE SULFATE
     Indication: PRODUCT USED FOR UNKNOWN INDICATION
     Route: 065
  16. BUPIVACAINE. [Concomitant]
     Active Substance: BUPIVACAINE
     Dosage: 1 ML DAILY;

REACTIONS (4)
  - Dysphagia [Not Recovered/Not Resolved]
  - Respiratory tract infection [Not Recovered/Not Resolved]
  - Sputum discoloured [Not Recovered/Not Resolved]
  - Sputum increased [Not Recovered/Not Resolved]
